FAERS Safety Report 6420964-4 (Version None)
Quarter: 2009Q4

REPORT INFORMATION
  Report Type: 
  Country: None (occurrence: None)
  Receive Date: 20091030
  Receipt Date: 20091019
  Transmission Date: 20100525
  Serious: Yes (Other)
  Sender: FDA-Public Use
  Company Number: NL-JNJFOC-20091005118

PATIENT
  Sex: Female

DRUGS (4)
  1. REMINYL [Suspect]
     Route: 065
  2. REMINYL [Suspect]
     Route: 065
  3. REMINYL [Suspect]
     Route: 065
  4. REMINYL [Suspect]
     Indication: DEMENTIA ALZHEIMER'S TYPE
     Route: 065

REACTIONS (3)
  - CHEST PAIN [None]
  - COGNITIVE DISORDER [None]
  - HYPERVENTILATION [None]
